FAERS Safety Report 8334816-6 (Version None)
Quarter: 2012Q2

REPORT INFORMATION
  Report Type: 
  Country: None (occurrence: None)
  Receive Date: 20120503
  Receipt Date: 20100810
  Transmission Date: 20120825
  Serious: No
  Sender: FDA-Public Use
  Company Number: US-TEVA-2010004221

PATIENT
  Sex: Female
  Weight: 62.652 kg

DRUGS (4)
  1. NUVIGIL [Suspect]
     Indication: SOMNOLENCE
     Dosage: 150 MILLIGRAM;
     Route: 048
     Dates: start: 20100803
  2. HOLISTIC VITAMIN [Concomitant]
  3. MAGNESIUM [Concomitant]
  4. SEAWEED VITAMINS [Concomitant]

REACTIONS (4)
  - FLATULENCE [None]
  - VOMITING [None]
  - INSOMNIA [None]
  - ABDOMINAL DISCOMFORT [None]
